FAERS Safety Report 4686334-4 (Version None)
Quarter: 2005Q2

REPORT INFORMATION
  Report Type: 
  Country: None (occurrence: None)
  Receive Date: 20050606
  Receipt Date: 20050524
  Transmission Date: 20051028
  Serious: Yes (Other)
  Sender: FDA-Public Use
  Company Number: 2005064683

PATIENT
  Age: 6 Year
  Sex: Male
  Weight: 33.6 kg

DRUGS (9)
  1. GENOTROPIN [Suspect]
     Indication: HYPOPITUITARISM
     Dosage: SEE IMAGE
     Route: 058
     Dates: start: 19970819, end: 19980217
  2. GENOTROPIN [Suspect]
     Indication: HYPOPITUITARISM
     Dosage: SEE IMAGE
     Route: 058
     Dates: start: 19980217, end: 19980721
  3. GENOTROPIN [Suspect]
     Indication: HYPOPITUITARISM
     Dosage: SEE IMAGE
     Route: 058
     Dates: start: 19980721, end: 19980925
  4. GENOTROPIN [Suspect]
     Indication: HYPOPITUITARISM
     Dosage: SEE IMAGE
     Route: 058
     Dates: start: 19980925, end: 19990119
  5. GENOTROPIN [Suspect]
     Indication: HYPOPITUITARISM
     Dosage: SEE IMAGE
     Route: 058
     Dates: start: 19990119, end: 20041008
  6. GENOTROPIN [Suspect]
     Indication: HYPOPITUITARISM
     Dosage: SEE IMAGE
     Route: 058
     Dates: start: 20041008
  7. LEVOTHYROXINE SODIUM [Concomitant]
  8. CORTRIL [Concomitant]
  9. DESMOPRESSIN (DESMOPRESSIN) [Concomitant]

REACTIONS (3)
  - ARTHRALGIA [None]
  - ASEPTIC NECROSIS BONE [None]
  - OSTEOCHONDROSIS [None]
